FAERS Safety Report 6571266-7 (Version None)
Quarter: 2010Q1

REPORT INFORMATION
  Report Type: 
  Country: None (occurrence: None)
  Receive Date: 20100129
  Receipt Date: 20100120
  Transmission Date: 20100710
  Serious: Yes (Hospitalization)
  Sender: FDA-Public Use
  Company Number: TCI2009A04519

PATIENT
  Age: 92 Year
  Sex: Female

DRUGS (9)
  1. ACTOS [Suspect]
     Indication: TYPE 2 DIABETES MELLITUS
     Dosage: 15 MG (15 MG, 1 IN 1 D), PER ORAL
     Route: 048
     Dates: start: 20060619, end: 20090908
  2. ASPENON (APRINDINE HYDROCHLORIDE) [Concomitant]
  3. ANGINAL (DIPYRIDAMOLE) [Concomitant]
  4. CONIEL (BENIDIPINE HYDROCHLORIDE) [Concomitant]
  5. METHYCOBAL (MECOBALAMIN) [Concomitant]
  6. TRICHLORMETHIAZIDE [Concomitant]
  7. ALDACTONE [Concomitant]
  8. GLIMICRON (GLICLAZIDE) [Concomitant]
  9. THEOLONG (THEOPHYLLINE) [Concomitant]

REACTIONS (5)
  - ATRIAL FIBRILLATION [None]
  - CARDIOMEGALY [None]
  - DILATATION ATRIAL [None]
  - PERICARDIAL EFFUSION [None]
  - TACHYCARDIA [None]
